FAERS Safety Report 23776686 (Version 3)
Quarter: 2024Q4

REPORT INFORMATION
  Report Type: Report from Study
  Country: DE (occurrence: DE)
  Receive Date: 20240424
  Receipt Date: 20241105
  Transmission Date: 20250115
  Serious: No
  Sender: ROCHE
  Company Number: DE-ROCHE-3441203

PATIENT
  Age: 34 Year
  Sex: Female

DRUGS (13)
  1. OCREVUS [Suspect]
     Active Substance: OCRELIZUMAB
     Indication: Relapsing multiple sclerosis
     Dosage: FREQUENCY TEXT:ONCE
     Route: 042
     Dates: start: 20231016
  2. OCREVUS [Suspect]
     Active Substance: OCRELIZUMAB
     Route: 042
     Dates: start: 20240415
  3. OCREVUS [Suspect]
     Active Substance: OCRELIZUMAB
     Route: 042
  4. LEVOTHYROXINE SODIUM [Concomitant]
     Active Substance: LEVOTHYROXINE SODIUM
     Indication: Hypothyroidism
     Dosage: DOSE: 50/75 MG?DOSE FREQUENCY: OTHER
     Route: 048
     Dates: start: 202106
  5. MIRTAZAPINE [Concomitant]
     Active Substance: MIRTAZAPINE
     Indication: Post-acute COVID-19 syndrome
     Route: 048
     Dates: start: 2022, end: 202301
  6. CHOLECALCIFEROL [Concomitant]
     Active Substance: CHOLECALCIFEROL
     Indication: Prophylaxis
     Route: 048
     Dates: start: 2023
  7. AMOXICILLIN [Concomitant]
     Active Substance: AMOXICILLIN
     Indication: Sinusitis
     Route: 048
     Dates: start: 20231227, end: 20240105
  8. PREDNISOLONE [Concomitant]
     Active Substance: PREDNISOLONE
     Dosage: FREQUENCY TEXT:ONCE
     Route: 042
     Dates: start: 20231016, end: 20231016
  9. PREDNISOLONE [Concomitant]
     Active Substance: PREDNISOLONE
     Dosage: FREQUENCY TEXT:ONCE
     Route: 042
     Dates: start: 20231030, end: 20231030
  10. PREDNISOLONE [Concomitant]
     Active Substance: PREDNISOLONE
     Dosage: FREQUENCY TEXT:ONCE
     Route: 042
     Dates: start: 20240415, end: 20240415
  11. EBASTINE [Concomitant]
     Active Substance: EBASTINE
     Dosage: DOSE FREQUENCY: 2 TIMES A DAY FOR 3 DAYS, START 1 DAY BEFORE INFUSION
     Route: 048
     Dates: start: 20231015, end: 20231017
  12. EBASTINE [Concomitant]
     Active Substance: EBASTINE
     Dosage: DOSE FREQUENCY: 2 TIMES A DAY FOR 3 DAYS, START 1 DAY BEFORE INFUSION
     Route: 048
     Dates: start: 20231029, end: 20231031
  13. EBASTINE [Concomitant]
     Active Substance: EBASTINE
     Dosage: DOSE FREQUENCY: 2 TIMES A DAY FOR 3 DAYS, START 1 DAY BEFORE INFUSION
     Route: 048
     Dates: start: 20240414, end: 20240416

REACTIONS (3)
  - Infusion related reaction [Recovered/Resolved]
  - Lymphopenia [Not Recovered/Not Resolved]
  - Oral herpes [Recovered/Resolved]

NARRATIVE: CASE EVENT DATE: 20231016
